FAERS Safety Report 6427808-5 (Version None)
Quarter: 2009Q4

REPORT INFORMATION
  Report Type: 
  Country: None (occurrence: None)
  Receive Date: 20091104
  Receipt Date: 20091104
  Transmission Date: 20100525
  Serious: Yes (Life-Threatening, Hospitalization)
  Sender: FDA-Public Use
  Company Number: None

PATIENT
  Sex: Male
  Weight: 87.9978 kg

DRUGS (1)
  1. ZOCOR [Suspect]
     Indication: BLOOD CHOLESTEROL
     Dosage: 20 MG 1 X DAILY
     Dates: start: 20070101, end: 20090601

REACTIONS (7)
  - BLOOD COUNT ABNORMAL [None]
  - DIALYSIS [None]
  - LIVER DISORDER [None]
  - MOBILITY DECREASED [None]
  - MUSCLE DISORDER [None]
  - OBSTRUCTION [None]
  - RENAL DISORDER [None]
